FAERS Safety Report 17581923 (Version 1)
Quarter: 2020Q1

REPORT INFORMATION
  Report Type: Spontaneous
  Country: US (occurrence: US)
  Receive Date: 20200325
  Receipt Date: 20200325
  Transmission Date: 20200409
  Serious: Yes (Hospitalization)
  Sender: FDA-Public Use
  Company Number: None

PATIENT
  Age: 89 Year
  Sex: Female
  Weight: 36.29 kg

DRUGS (2)
  1. DIPHENHYDRAMINE. [Suspect]
     Active Substance: DIPHENHYDRAMINE
     Dosage: ?          OTHER FREQUENCY:Q 2 WEEKS;?
     Route: 042
  2. EMPLICITI [Suspect]
     Active Substance: ELOTUZUMAB
     Dosage: ?          OTHER FREQUENCY:Q 4 WEEKS;?
     Route: 042

REACTIONS (2)
  - Dehydration [None]
  - Therapy cessation [None]
